FAERS Safety Report 21525158 (Version 1)
Quarter: 2022Q4

REPORT INFORMATION
  Report Type: Spontaneous
  Country: PT (occurrence: PT)
  Receive Date: 20221030
  Receipt Date: 20221030
  Transmission Date: 20230112
  Serious: Yes (Other)
  Sender: FDA-Public Use
  Company Number: PT-HAMELN-2022HAM000941

PATIENT

DRUGS (3)
  1. ROPIVACAINE [Suspect]
     Active Substance: ROPIVACAINE
     Indication: Foetal exposure during delivery
     Dosage: UNK(MULTIPLE ADMINISTRATIONS OF ROPIVACAINE AT DIFFERENT CONCENTRATIONS)
     Route: 064
  2. TRAMADOL [Suspect]
     Active Substance: TRAMADOL
     Indication: Foetal exposure during delivery
     Dosage: UNK
     Route: 064
  3. SUFENTANIL [Suspect]
     Active Substance: SUFENTANIL
     Indication: Foetal exposure during delivery
     Dosage: BOLUS
     Route: 064

REACTIONS (2)
  - Bradycardia foetal [Unknown]
  - Foetal exposure during delivery [Unknown]
